FAERS Safety Report 11311329 (Version 2)
Quarter: 2015Q3

REPORT INFORMATION
  Report Type: Report from Study
  Country: CA (occurrence: CA)
  Receive Date: 20150727
  Receipt Date: 20150819
  Transmission Date: 20151125
  Serious: Yes (Other)
  Sender: FDA-Public Use
  Company Number: PHHY2015CA060874

PATIENT
  Age: 80 Year
  Sex: Female

DRUGS (2)
  1. SANDOSTATIN [Suspect]
     Active Substance: OCTREOTIDE ACETATE
     Indication: NEUROENDOCRINE CARCINOMA METASTATIC
     Dosage: UG, ONCE TEST DOSE
     Route: 058
     Dates: start: 20150415, end: 20150415
  2. SANDOSTATIN LAR DEPOT [Suspect]
     Active Substance: OCTREOTIDE ACETATE
     Indication: NEUROENDOCRINE CARCINOMA METASTATIC
     Dosage: 30 MG, QMO (EVERY 4 WEEKS)
     Route: 030
     Dates: start: 20150417

REACTIONS (5)
  - Respiratory rate increased [Unknown]
  - Blood pressure systolic increased [Unknown]
  - Pain [Unknown]
  - Needle issue [Unknown]
  - Nervousness [Unknown]

NARRATIVE: CASE EVENT DATE: 20150515
